FAERS Safety Report 9049991 (Version 3)
Quarter: 2013Q2

REPORT INFORMATION
  Report Type: Report from Study
  Country: BE (occurrence: BE)
  Receive Date: 20130115
  Receipt Date: 20130405
  Transmission Date: 20140414
  Serious: Yes (Hospitalization)
  Sender: FDA-Public Use
  Company Number: BE-BAYER-2012-085046

PATIENT
  Age: 62 Year
  Sex: Male
  Weight: 76 kg

DRUGS (7)
  1. REGORAFENIB [Suspect]
     Indication: COLORECTAL CANCER METASTATIC
     Dosage: 160 MG, QD, 3 WK ON/1 WK OFF
     Route: 048
     Dates: start: 20120724, end: 20120812
  2. REGORAFENIB [Suspect]
     Indication: COLORECTAL CANCER METASTATIC
     Dosage: 160 MG, QD, 3 WK ON/1 WK OFF
     Route: 048
     Dates: start: 20120724, end: 20120812
  3. REGORAFENIB [Suspect]
     Indication: COLORECTAL CANCER METASTATIC
     Dosage: 160 MG, QD, 3 WK ON/1 WK OFF
     Route: 048
     Dates: start: 20120724, end: 20120812
  4. REGORAFENIB [Suspect]
     Indication: COLORECTAL CANCER METASTATIC
     Dosage: 160 MG, QD, 3 WK ON/1 WK OFF
     Route: 048
     Dates: start: 20120822
  5. REGORAFENIB [Suspect]
     Indication: COLORECTAL CANCER METASTATIC
     Dosage: 160 MG, QD, 3 WK ON/1 WK OFF
     Route: 048
     Dates: start: 20120822
  6. REGORAFENIB [Suspect]
     Indication: COLORECTAL CANCER METASTATIC
     Dosage: 160 MG, QD, 3 WK ON/1 WK OFF
     Route: 048
     Dates: start: 20120822
  7. INDERAL [Concomitant]
     Indication: HYPERTENSION
     Dosage: DAILY DOSE: 80 MG
     Route: 048
     Dates: start: 2005

REACTIONS (1)
  - Encephalopathy [Recovered/Resolved]
